FAERS Safety Report 6819115-3 (Version None)
Quarter: 2010Q2

REPORT INFORMATION
  Report Type: 
  Country: None (occurrence: None)
  Receive Date: 20100630
  Receipt Date: 20100621
  Transmission Date: 20101027
  Serious: Yes (Hospitalization, Other)
  Sender: FDA-Public Use
  Company Number: 005112

PATIENT
  Sex: Female

DRUGS (3)
  1. KEPPRA [Suspect]
     Indication: EPILEPSY
     Dosage: (2500 MG QD ORAL)
     Route: 048
  2. PRENATAL VITAMINS /01549301/ [Concomitant]
  3. FOLIC ACID [Concomitant]

REACTIONS (8)
  - ANAEMIA [None]
  - CAESAREAN SECTION [None]
  - DRUG EXPOSURE DURING PREGNANCY [None]
  - INTESTINAL OBSTRUCTION [None]
  - POSTOPERATIVE WOUND INFECTION [None]
  - PREMATURE RUPTURE OF MEMBRANES [None]
  - PROCEDURAL PAIN [None]
  - WOUND SECRETION [None]
